FAERS Safety Report 5420772-7 (Version None)
Quarter: 2007Q3

REPORT INFORMATION
  Report Type: 
  Country: None (occurrence: None)
  Receive Date: 20070816
  Receipt Date: 20070801
  Transmission Date: 20080115
  Serious: Yes (Hospitalization)
  Sender: FDA-Public Use
  Company Number: 2006001529

PATIENT
  Age: 69 Year
  Sex: Female

DRUGS (20)
  1. ERLOTINIB (TABLET) [Suspect]
     Indication: PANCREATIC CARCINOMA METASTATIC
     Dosage: 100 MG (QD), ORAL
     Route: 048
     Dates: start: 20060620
  2. BEVACIZUMAB/PLACEBO(INJECTION FOR INFUSION) [Suspect]
     Indication: PANCREATIC CARCINOMA METASTATIC
     Dosage: 5 MG/KG 1 X PER 2 WEEKS (Q2W),INTRAVENOUS
     Route: 042
     Dates: start: 20060620, end: 20060705
  3. GEMCITABINE [Suspect]
     Indication: PANCREATIC CARCINOMA METASTATIC
     Dosage: 1215MG (OW),INTRAVENOUS
     Route: 042
     Dates: start: 20060620, end: 20060712
  4. BEVACIZUMAB(INJECTION FOR INFUSION) [Suspect]
     Indication: PANCREATIC CARCINOMA METASTATIC
     Dosage: 5 MG/KG (O2W),INTRAVENOUS
     Route: 042
     Dates: start: 20060620
  5. GEMCITABINE [Suspect]
     Indication: PANCREATIC CARCINOMA METASTATIC
     Dosage: 1215 MG (OW),INTRAVENOUS
     Route: 042
     Dates: start: 20060620
  6. CRESTOR [Concomitant]
  7. GLYBURIDE [Concomitant]
  8. METFORMIN HCL [Concomitant]
  9. POTASSIUM CHLORIDE [Concomitant]
  10. ASPIRIN [Concomitant]
  11. CITALOPRAM HYDROBROMIDE [Concomitant]
  12. ADVIL [Concomitant]
  13. LOMOTIL [Concomitant]
  14. DILAUDID [Concomitant]
  15. FLAGYL [Concomitant]
  16. FLORINEF [Concomitant]
  17. IMODIUM [Concomitant]
  18. COTAZM (PANCREATIN) [Concomitant]
  19. ACTIVAN (LORAZEPAM) [Concomitant]
  20. COMBIVENT [Concomitant]

REACTIONS (7)
  - ASTHENIA [None]
  - CLOSTRIDIAL INFECTION [None]
  - DECREASED APPETITE [None]
  - FAILURE TO THRIVE [None]
  - FATIGUE [None]
  - HAEMOGLOBIN DECREASED [None]
  - ORAL INTAKE REDUCED [None]
